FAERS Safety Report 10186738 (Version 2)
Quarter: 2014Q2

REPORT INFORMATION
  Report Type: Report from Study
  Country: CA (occurrence: CA)
  Receive Date: 20140521
  Receipt Date: 20140627
  Transmission Date: 20141212
  Serious: Yes (Other)
  Sender: FDA-Public Use
  Company Number: PHHY2014CA059850

PATIENT
  Age: 48 Year
  Sex: Male

DRUGS (10)
  1. ACLASTA [Suspect]
     Indication: OSTEOPOROSIS
     Dosage: 5 MG, UNK
     Route: 042
     Dates: start: 20111125
  2. ACLASTA [Suspect]
     Dosage: 5 MG, UNK
     Route: 042
     Dates: start: 20121210
  3. TECTA [Concomitant]
     Dosage: UNK UKN, UNK
  4. HYDROMORPHONE [Concomitant]
     Dosage: UNK UKN, UNK
  5. ATIVAN [Concomitant]
     Dosage: UNK UKN, UNK
  6. COLECALCIFEROL [Concomitant]
     Dosage: UNK UKN, UNK
  7. VITAMIN B12 [Concomitant]
     Dosage: UNK UKN, UNK
     Route: 065
  8. HORMONES [Concomitant]
     Dosage: UNK UKN, UNK
     Route: 065
  9. MAXERAN [Concomitant]
     Dosage: UNK UKN, UNK
  10. LASIX [Concomitant]
     Dosage: UNK UKN, UNK

REACTIONS (4)
  - Renal disorder [Unknown]
  - Pollakiuria [Unknown]
  - Dysuria [Unknown]
  - Kidney fibrosis [Unknown]
